FAERS Safety Report 9297118 (Version 2)
Quarter: 2013Q2

REPORT INFORMATION
  Report Type: Report from Study
  Country: GB (occurrence: GB)
  Receive Date: 20130520
  Receipt Date: 20130528
  Transmission Date: 20140414
  Serious: Yes (Hospitalization)
  Sender: FDA-Public Use
  Company Number: GB-AMGEN-GBRCT2013034923

PATIENT
  Age: 65 Year
  Sex: Female

DRUGS (2)
  1. ETANERCEPT [Suspect]
     Indication: RHEUMATOID ARTHRITIS
     Dosage: 25 MG, 2 TIMES/WK
     Dates: start: 20061110
  2. METHOTREXATE [Concomitant]
     Dosage: UNK

REACTIONS (2)
  - Metastases to spine [Unknown]
  - Lower respiratory tract infection [Unknown]
